FAERS Safety Report 4793789-3 (Version None)
Quarter: 2005Q4

REPORT INFORMATION
  Report Type: 
  Country: None (occurrence: None)
  Receive Date: 20051011
  Receipt Date: 20050218
  Transmission Date: 20060501
  Serious: Yes (Death, Hospitalization)
  Sender: FDA-Public Use
  Company Number: 200511514GDDC

PATIENT
  Age: 58 Year
  Sex: Female

DRUGS (5)
  1. DOCETAXEL [Suspect]
     Indication: BREAST CANCER
     Dosage: DOSE: UNK
     Dates: start: 20050118, end: 20050118
  2. DEXAMETHASONE [Suspect]
     Indication: PREMEDICATION
  3. SOMAC [Concomitant]
     Indication: GASTRITIS
     Dates: start: 20050119
  4. PANACOD [Concomitant]
     Indication: PAIN
     Dates: start: 20050120
  5. OXYNORM [Concomitant]
     Indication: PAIN
     Dates: start: 20050120

REACTIONS (6)
  - ABDOMINAL PAIN UPPER [None]
  - GASTRIC HAEMORRHAGE [None]
  - HAEMATEMESIS [None]
  - HYPERGLYCAEMIA [None]
  - HYPERKALAEMIA [None]
  - TACHYCARDIA [None]
